FAERS Safety Report 5421013-7 (Version None)
Quarter: 2007Q3

REPORT INFORMATION
  Report Type: 
  Country: None (occurrence: None)
  Receive Date: 20070821
  Receipt Date: 20070821
  Transmission Date: 20080115
  Serious: Yes (Other)
  Sender: FDA-Public Use
  Company Number: A0672812A

PATIENT

DRUGS (1)
  1. ALLI [Suspect]
     Indication: WEIGHT CONTROL
     Route: 048

REACTIONS (3)
  - FAECAL INCONTINENCE [None]
  - FAECES DISCOLOURED [None]
  - STEATORRHOEA [None]
